FAERS Safety Report 4413937-4 (Version None)
Quarter: 2004Q3

REPORT INFORMATION
  Report Type: 
  Country: None (occurrence: None)
  Receive Date: 20040803
  Receipt Date: 20040723
  Transmission Date: 20050211
  Serious: Yes (Other)
  Sender: FDA-Public Use
  Company Number: JP-ROCHE-375525

PATIENT

DRUGS (2)
  1. VESANOID [Suspect]
     Indication: ACUTE PROMYELOCYTIC LEUKAEMIA
     Dates: start: 20040106, end: 20040212
  2. DEXAMETHASONE [Concomitant]
     Indication: ACUTE PROMYELOCYTIC LEUKAEMIA
     Dates: start: 20040106, end: 20040113

REACTIONS (5)
  - DRUG EXPOSURE DURING PREGNANCY [None]
  - FOETAL HEART RATE DECELERATION [None]
  - FOETAL HEART RATE DECREASED [None]
  - FOETAL MOVEMENTS DECREASED [None]
  - UMBILICAL CORD ABNORMALITY [None]
